FAERS Safety Report 4902867-7 (Version None)
Quarter: 2006Q1

REPORT INFORMATION
  Report Type: 
  Country: None (occurrence: None)
  Receive Date: 20060207
  Receipt Date: 20060201
  Transmission Date: 20060701
  Serious: Yes (Other)
  Sender: FDA-Public Use
  Company Number: MX-BOEHRINGER INGELHEIM PHARMACEUTICALS, INC.-2006-BP-01193MX

PATIENT
  Age: 80 Year
  Sex: Male

DRUGS (1)
  1. SECOTEX CAPSULES 0.4MG [Suspect]
     Indication: BENIGN PROSTATIC HYPERPLASIA
     Route: 048
     Dates: start: 20051130

REACTIONS (1)
  - PROSTATE CANCER [None]
